FAERS Safety Report 11354313 (Version 1)
Quarter: 2015Q3

REPORT INFORMATION
  Report Type: Spontaneous
  Country: US (occurrence: US)
  Receive Date: 20150807
  Receipt Date: 20150807
  Transmission Date: 20151125
  Serious: No
  Sender: FDA-Public Use
  Company Number: US-JNJFOC-20150313159

PATIENT
  Sex: Female

DRUGS (2)
  1. WOMENS ROGAINE [Suspect]
     Active Substance: MINOXIDIL
     Indication: HAIR GROWTH ABNORMAL
     Dosage: 1/2 DROPPER FULL, 3-4 TIMES AN APPLICATION.
     Route: 061
  2. WOMENS ROGAINE [Suspect]
     Active Substance: MINOXIDIL
     Route: 061

REACTIONS (4)
  - Hair texture abnormal [Not Recovered/Not Resolved]
  - Swelling face [Recovered/Resolved]
  - Incorrect dose administered [Unknown]
  - Hair growth abnormal [Not Recovered/Not Resolved]
